FAERS Safety Report 23920902 (Version 2)
Quarter: 2024Q2

REPORT INFORMATION
  Report Type: Report from Study
  Country: CA (occurrence: CA)
  Receive Date: 20240530
  Receipt Date: 20240621
  Transmission Date: 20240715
  Serious: Yes (Other)
  Sender: FDA-Public Use
  Company Number: CA-JNJFOC-20230908540

PATIENT
  Age: 72 Year
  Sex: Female

DRUGS (14)
  1. REMICADE [Suspect]
     Active Substance: INFLIXIMAB
     Indication: Pyoderma gangrenosum
     Dosage: THERAPY START DATE WAS ALSO GIVEN AS 12/JUL/2023. INFUSION ON 12/JUL/2023 AND 05-SEP-2023?THERAPY ST
     Route: 041
     Dates: start: 20181030, end: 20230926
  2. REMICADE [Suspect]
     Active Substance: INFLIXIMAB
     Route: 041
     Dates: end: 20230905
  3. PANTOPRAZOLE [Concomitant]
     Active Substance: PANTOPRAZOLE
  4. ASPIRIN [Concomitant]
     Active Substance: ASPIRIN
     Dosage: 81
  5. PREGABALIN [Concomitant]
     Active Substance: PREGABALIN
  6. DULOXETINE [Concomitant]
     Active Substance: DULOXETINE
  7. SINEQUAN [Concomitant]
     Active Substance: DOXEPIN HYDROCHLORIDE
  8. RAMIPRIL [Concomitant]
     Active Substance: RAMIPRIL
  9. ATORVASTATIN [Concomitant]
     Active Substance: ATORVASTATIN
  10. SYNTHROID [Concomitant]
     Active Substance: LEVOTHYROXINE SODIUM
     Dosage: 50 MICROGRAM
  11. MONTELUKAST [Concomitant]
     Active Substance: MONTELUKAST SODIUM
  12. ALBUTEROL [Concomitant]
     Active Substance: ALBUTEROL
     Dosage: 4 PUFFS AS REQUIRED
  13. VITAMIN B12 [Concomitant]
     Active Substance: CYANOCOBALAMIN
  14. ANASTROZOLE [Concomitant]
     Active Substance: ANASTROZOLE

REACTIONS (4)
  - Breast cancer [Recovered/Resolved]
  - Pyoderma gangrenosum [Unknown]
  - Shoulder arthroplasty [Not Recovered/Not Resolved]
  - Poor venous access [Recovered/Resolved]

NARRATIVE: CASE EVENT DATE: 20230901
